FAERS Safety Report 6849488-7 (Version None)
Quarter: 2010Q3

REPORT INFORMATION
  Report Type: 
  Country: None (occurrence: None)
  Receive Date: 20100716
  Receipt Date: 20071001
  Transmission Date: 20110219
  Serious: No
  Sender: FDA-Public Use
  Company Number: US-PFIZER INC-2007082730

PATIENT
  Sex: Female
  Weight: 52.2 kg

DRUGS (3)
  1. CHANTIX [Suspect]
     Indication: SMOKING CESSATION THERAPY
     Dates: start: 20070401, end: 20070701
  2. ALBUTEROL [Concomitant]
  3. ANTIBIOTICS [Concomitant]

REACTIONS (6)
  - DEHYDRATION [None]
  - DISTURBANCE IN ATTENTION [None]
  - HEADACHE [None]
  - HOT FLUSH [None]
  - INSOMNIA [None]
  - IRRITABILITY [None]
